FAERS Safety Report 19618971 (Version 2)
Quarter: 2022Q2

REPORT INFORMATION
  Report Type: Spontaneous
  Country: US (occurrence: None)
  Receive Date: 20210727
  Receipt Date: 20220621
  Transmission Date: 20220721
  Serious: No
  Sender: FDA-Public Use
  Company Number: US-ROCHE-2790908

PATIENT
  Age: 39 Year
  Sex: Male

DRUGS (2)
  1. XELODA [Suspect]
     Active Substance: CAPECITABINE
     Indication: Colon cancer
     Dosage: EVERY MORNING
     Route: 048
     Dates: start: 202101
  2. XELODA [Suspect]
     Active Substance: CAPECITABINE
     Dosage: 2500MG/2000MG
     Route: 048
     Dates: start: 202102, end: 202104

REACTIONS (7)
  - Skin discolouration [Unknown]
  - Dry skin [Unknown]
  - Blood bilirubin increased [Unknown]
  - Fatigue [Unknown]
  - Pigmentation disorder [Unknown]
  - Diarrhoea [Unknown]
  - Skin exfoliation [Unknown]

NARRATIVE: CASE EVENT DATE: 20210309
